FAERS Safety Report 4830142-8 (Version None)
Quarter: 2005Q4

REPORT INFORMATION
  Report Type: 
  Country: None (occurrence: None)
  Receive Date: 20051115
  Receipt Date: 20051115
  Transmission Date: 20060501
  Serious: Yes (Hospitalization)
  Sender: FDA-Public Use
  Company Number: None

PATIENT
  Age: 74 Year
  Sex: Female

DRUGS (22)
  1. WARFARIN SODIUM [Suspect]
     Indication: ANTICOAGULANT THERAPY
     Dosage: 6 MG MWF, 5G TU TH SAT SUN
  2. LEVAQUIN [Suspect]
     Dosage: 500 MG IV
     Route: 042
     Dates: start: 20050826
  3. TOPROL-XL [Concomitant]
  4. ADVAIR DISKUS 100/50 [Concomitant]
  5. DUONEB [Concomitant]
  6. ALBUTEROL [Concomitant]
  7. XANAX [Concomitant]
  8. PAXIL [Concomitant]
  9. REMERON [Concomitant]
  10. LASIX [Concomitant]
  11. POTASSIUM CHLORIDE [Concomitant]
  12. MIACALCIN [Concomitant]
  13. NEUTRONTIN [Concomitant]
  14. ZANTAC [Concomitant]
  15. OXYCONTIN [Concomitant]
  16. COUMADIN [Concomitant]
  17. OSCAL [Concomitant]
  18. PERCOCET [Concomitant]
  19. LAXATIVE [Concomitant]
  20. NASAL O2 [Concomitant]
  21. ZOSYN [Concomitant]
  22. LEVAQUIN [Concomitant]

REACTIONS (3)
  - GASTRITIS EROSIVE [None]
  - INTERNATIONAL NORMALISED RATIO INCREASED [None]
  - PNEUMONIA ASPIRATION [None]
